FAERS Safety Report 22165704 (Version 1)
Quarter: 2023Q2

REPORT INFORMATION
  Report Type: Spontaneous
  Country: GB (occurrence: GB)
  Receive Date: 20230403
  Receipt Date: 20230403
  Transmission Date: 20230721
  Serious: Yes (Other)
  Sender: FDA-Public Use
  Company Number: None

PATIENT
  Age: 75 Year
  Sex: Female
  Weight: 78 kg

DRUGS (15)
  1. METHENAMINE [Suspect]
     Active Substance: METHENAMINE
     Indication: Ill-defined disorder
     Dosage: TAKE ONE TWICE DAILY FOR RECURRENT UTI AS PER S...
     Dates: start: 20230223
  2. METHENAMINE [Suspect]
     Active Substance: METHENAMINE
     Dates: start: 20230324
  3. AMITRIPTYLINE HYDROCHLORIDE. [Concomitant]
     Indication: Ill-defined disorder
     Dosage: TWO  OR THREE BE TAKEN AT NIGHT FOR PAIN
     Dates: start: 20221113
  4. ATORVASTATIN [Concomitant]
     Active Substance: ATORVASTATIN
     Indication: Ill-defined disorder
     Dosage: ONE TO BE TAKEN EVERY DAY
     Dates: start: 20221113
  5. BUPRENORPHINE [Concomitant]
     Active Substance: BUPRENORPHINE
     Indication: Ill-defined disorder
     Dosage: APPLY ONE WEEKLY
     Dates: start: 20230202, end: 20230302
  6. BUPRENORPHINE [Concomitant]
     Active Substance: BUPRENORPHINE
     Indication: Ill-defined disorder
     Dosage: APPLY ONE PATCH EVERY 7 DAYS. APPLY TO DRY, NON...
     Dates: start: 20221113, end: 20230320
  7. FAMOTIDINE [Concomitant]
     Active Substance: FAMOTIDINE
     Indication: Ill-defined disorder
     Dosage: USE AS DIRECTEONE DAILY
     Dates: start: 20221113
  8. FELODIPINE [Concomitant]
     Active Substance: FELODIPINE
     Indication: Ill-defined disorder
     Dosage: TAKE ONE DAILY
     Dates: start: 20221113
  9. IBUPROFEN [Concomitant]
     Active Substance: IBUPROFEN
     Indication: Ill-defined disorder
     Dosage: TAKE ONE 3 TIMES/DAY
     Dates: start: 20221113
  10. LACTULOSE [Concomitant]
     Active Substance: LACTULOSE
     Indication: Ill-defined disorder
     Dosage: 15ML TWICE DAILY
     Dates: start: 20221113
  11. POLYETHYLENE GLYCOL 3350\POTASSIUM CHLORIDE\SODIUM BICARBONATE\SODIUM [Concomitant]
     Active Substance: POLYETHYLENE GLYCOL 3350\POTASSIUM CHLORIDE\SODIUM BICARBONATE\SODIUM CHLORIDE
     Indication: Ill-defined disorder
     Dosage: 1-2 SACHETS DAILY TO PREVENT CONSTIPATION
     Dates: start: 20221113
  12. NITROFURANTOIN. [Concomitant]
     Indication: Ill-defined disorder
     Dosage: TAKE ONE TWICE DAILY
     Dates: start: 20230224, end: 20230303
  13. SEVODYNE [Concomitant]
     Indication: Ill-defined disorder
     Dosage: APPLY ONE PATCH EVERY 7 DAYS. APPLY TO DRY, NON...
     Dates: start: 20230320
  14. THEICAL-D3 [Concomitant]
     Indication: Ill-defined disorder
     Dosage: TAKE ONE TABLET ONCE DAILY TO REDUCE RISK OF FR...
     Dates: start: 20221113
  15. TRAMADOL [Concomitant]
     Active Substance: TRAMADOL
     Indication: Ill-defined disorder
     Dosage: ONE OR TWO CAPSULES TO BE TAKEN UP TO FOUR TIME...
     Dates: start: 20221113

REACTIONS (1)
  - Tachycardia [Recovered/Resolved]

NARRATIVE: CASE EVENT DATE: 20230324
